FAERS Safety Report 16834942 (Version 3)
Quarter: 2021Q1

REPORT INFORMATION
  Report Type: Spontaneous
  Country: US (occurrence: US)
  Receive Date: 20190920
  Receipt Date: 20210311
  Transmission Date: 20210419
  Serious: Yes (Disabling)
  Sender: FDA-Public Use
  Company Number: US-TEVA-2019-US-1110215

PATIENT

DRUGS (6)
  1. DOCETAXEL SANOFI AVENTIS [Suspect]
     Active Substance: DOCETAXEL
     Dosage: DOSAGE: 20MG
     Route: 065
     Dates: start: 20131217, end: 20140408
  2. DOCETAXEL HOSPIRA [Suspect]
     Active Substance: DOCETAXEL
     Dosage: DOSAGE: 80MG
     Route: 065
     Dates: start: 20131217, end: 20140408
  3. DOCETAXEL SAGENT [Suspect]
     Active Substance: DOCETAXEL
     Dosage: DOSAGE: 20MG
     Route: 065
     Dates: start: 20131217, end: 20140408
  4. DOCETAXEL SANOFI AVENTIS [Suspect]
     Active Substance: DOCETAXEL
     Dosage: DOSAGE: 80MG
     Route: 065
     Dates: start: 20131217, end: 20140408
  5. DOCETAXEL SANDOZ [Suspect]
     Active Substance: DOCETAXEL
     Dosage: DOSAGE: 80MG
     Route: 065
     Dates: start: 20131217, end: 20140408
  6. DOCETAXEL SAGENT [Suspect]
     Active Substance: DOCETAXEL
     Dosage: DOSAGE: 80MG
     Route: 065
     Dates: start: 20131217, end: 20140408

REACTIONS (1)
  - Alopecia [Not Recovered/Not Resolved]
